FAERS Safety Report 10651737 (Version 1)
Quarter: 2014Q4

REPORT INFORMATION
  Report Type: Spontaneous
  Country: US (occurrence: US)
  Receive Date: 20141215
  Receipt Date: 20141215
  Transmission Date: 20150529
  Serious: Yes (Hospitalization)
  Sender: FDA-Public Use
  Company Number: US-BAUSCH-BL-2014-010527

PATIENT
  Age: 81 Year
  Sex: Male

DRUGS (2)
  1. XENAZINE [Suspect]
     Active Substance: TETRABENAZINE
     Indication: DYSKINESIA
  2. XENAZINE [Suspect]
     Active Substance: TETRABENAZINE
     Indication: CEREBROVASCULAR ACCIDENT
     Route: 048
     Dates: start: 20141121

REACTIONS (2)
  - Off label use [Not Recovered/Not Resolved]
  - Hospitalisation [Unknown]

NARRATIVE: CASE EVENT DATE: 2014
